FAERS Safety Report 21709879 (Version 1)
Quarter: 2022Q4

REPORT INFORMATION
  Report Type: Spontaneous
  Country: US (occurrence: US)
  Receive Date: 20221210
  Receipt Date: 20221210
  Transmission Date: 20230112
  Serious: Yes (Other)
  Sender: FDA-Public Use
  Company Number: US-TEVA-2022-US-2833617

PATIENT
  Age: 56 Year
  Sex: Female

DRUGS (3)
  1. GABAPENTIN [Suspect]
     Active Substance: GABAPENTIN
     Indication: Product used for unknown indication
     Route: 065
     Dates: start: 20221123, end: 2022
  2. LOSARTAN [Concomitant]
     Active Substance: LOSARTAN
     Indication: Hypertension
  3. TRULICITY [Concomitant]
     Active Substance: DULAGLUTIDE
     Indication: Overweight
     Dosage: ONCE A WEEK

REACTIONS (7)
  - Near death experience [Unknown]
  - Illness [Unknown]
  - Pain [Unknown]
  - Gait disturbance [Unknown]
  - Swelling [Recovered/Resolved]
  - Peripheral swelling [Recovered/Resolved]
  - Swelling face [Recovered/Resolved]

NARRATIVE: CASE EVENT DATE: 20221101
